FAERS Safety Report 8969779 (Version 1)
Quarter: 2012Q4

REPORT INFORMATION
  Report Type: 
  Country: US (occurrence: US)
  Receive Date: 20121218
  Receipt Date: 20121218
  Transmission Date: 20130627
  Serious: Yes (Other)
  Sender: FDA-Public Use
  Company Number: PHEH2012US024756

PATIENT
  Age: 9 Year
  Sex: Female

DRUGS (1)
  1. ILARIS [Suspect]
     Dosage: 60 mg, every 8 weeks
     Route: 058
     Dates: start: 20121208

REACTIONS (4)
  - Pyrexia [Unknown]
  - Pain [Recovering/Resolving]
  - Ocular hyperaemia [Unknown]
  - Erythema [Unknown]
